FAERS Safety Report 5630962-6 (Version None)
Quarter: 2008Q1

REPORT INFORMATION
  Report Type: 
  Country: None (occurrence: None)
  Receive Date: 20080219
  Receipt Date: 20080214
  Transmission Date: 20080703
  Serious: Yes (Life-Threatening, Hospitalization)
  Sender: FDA-Public Use
  Company Number: US-SANOFI-SYNTHELABO-F01200800257

PATIENT
  Sex: Male
  Weight: 79 kg

DRUGS (3)
  1. CETUXIMAB [Suspect]
     Route: 042
     Dates: start: 20080129, end: 20080129
  2. TAXOTERE [Suspect]
     Route: 042
     Dates: start: 20080212, end: 20080212
  3. ELOXATIN [Suspect]
     Indication: GASTROOESOPHAGEAL CANCER
     Route: 042
     Dates: start: 20080212, end: 20080212

REACTIONS (1)
  - GASTRIC PERFORATION [None]
